FAERS Safety Report 5059085-4 (Version None)
Quarter: 2006Q3

REPORT INFORMATION
  Report Type: 
  Country: None (occurrence: None)
  Receive Date: 20060718
  Receipt Date: 20060705
  Transmission Date: 20061208
  Serious: Yes (Hospitalization, Disabling, Other)
  Sender: FDA-Public Use
  Company Number: 2006084735

PATIENT
  Age: 48 Year
  Sex: Female
  Weight: 63.5036 kg

DRUGS (1)
  1. CELEBREX [Suspect]
     Indication: PAIN
     Dosage: 200 MG (200 MG, 1 IN 1 D)
     Dates: start: 19991201, end: 20040101

REACTIONS (4)
  - CEREBROVASCULAR ACCIDENT [None]
  - DEFORMITY [None]
  - MUSCLE ATROPHY [None]
  - PAIN [None]
